FAERS Safety Report 9893518 (Version 1)
Quarter: 2014Q1

REPORT INFORMATION
  Report Type: Spontaneous
  Country: JP (occurrence: JP)
  Receive Date: 20140213
  Receipt Date: 20140213
  Transmission Date: 20141002
  Serious: Yes (Death)
  Sender: FDA-Public Use
  Company Number: JP-NOVOPROD-399833

PATIENT
  Age: 60 Year
  Sex: Male
  Weight: 50 kg

DRUGS (6)
  1. NOVOSEVEN HI [Suspect]
     Indication: DUODENAL ULCER HAEMORRHAGE
     Dosage: 5 MG, QD
     Route: 042
     Dates: start: 20131215
  2. NOVOSEVEN HI [Suspect]
     Indication: ACQUIRED HAEMOPHILIA
  3. PREDNISOLONE [Suspect]
     Indication: FACTOR VIII INHIBITION
     Dosage: 50 MG, SINGLE (PULSE THERAPY)
     Route: 048
     Dates: start: 20131207
  4. PREDNISOLONE [Suspect]
     Dosage: UNK (PULSE THERAPY)
     Route: 048
     Dates: start: 201401
  5. ENDOXAN /00021101/ [Suspect]
     Indication: FACTOR VIII INHIBITION
     Dosage: UNK (PULSE THERAPY)
     Route: 042
     Dates: start: 201312
  6. ENDOXAN /00021101/ [Suspect]
     Dosage: UNK (PULSE THERAPY)
     Dates: start: 201401

REACTIONS (1)
  - Pneumonia [Fatal]
